FAERS Safety Report 4340373-1 (Version None)
Quarter: 2004Q2

REPORT INFORMATION
  Report Type: 
  Country: None (occurrence: None)
  Receive Date: 20040408
  Receipt Date: 20040326
  Transmission Date: 20050107
  Serious: Yes (Hospitalization)
  Sender: FDA-Public Use
  Company Number: 2004-01329

PATIENT
  Age: 71 Year
  Sex: Male

DRUGS (1)
  1. BCG THERAPEUTICS [Suspect]

REACTIONS (8)
  - FATIGUE [None]
  - FEELING ABNORMAL [None]
  - HAEMATURIA [None]
  - HILAR LYMPHADENOPATHY [None]
  - LUNG NEOPLASM [None]
  - PAIN [None]
  - PROSTATITIS [None]
  - PULMONARY GRANULOMA [None]
